FAERS Safety Report 10915011 (Version 2)
Quarter: 2015Q4

REPORT INFORMATION
  Report Type: Spontaneous
  Country: US (occurrence: US)
  Receive Date: 20150314
  Receipt Date: 20151126
  Transmission Date: 20160304
  Serious: No
  Sender: FDA-Public Use
  Company Number: US-ELI_LILLY_AND_COMPANY-US201503003268

PATIENT
  Age: 75 Year
  Sex: Male

DRUGS (8)
  1. CALCIUM [Concomitant]
     Active Substance: CALCIUM
  2. FORTEO [Suspect]
     Active Substance: TERIPARATIDE
     Indication: OSTEOPOROSIS
     Dosage: 20 UG, QD
     Route: 065
     Dates: start: 20150209
  3. VITAMIN D [Concomitant]
     Active Substance: CHOLECALCIFEROL
  4. BABY ASPIRIN [Concomitant]
     Active Substance: ASPIRIN
  5. EFFEXOR [Concomitant]
     Active Substance: VENLAFAXINE HYDROCHLORIDE
  6. MANGANESE [Concomitant]
     Active Substance: MANGANESE\MANGANESE CHLORIDE
  7. FORTEO [Suspect]
     Active Substance: TERIPARATIDE
     Dosage: 20 UG, QD
     Route: 065
  8. OCUVIT [Concomitant]

REACTIONS (3)
  - Incorrect product storage [Unknown]
  - Injection site haemorrhage [Unknown]
  - Medication error [Unknown]

NARRATIVE: CASE EVENT DATE: 201502
